FAERS Safety Report 14062826 (Version 3)
Quarter: 2018Q4

REPORT INFORMATION
  Report Type: Spontaneous
  Country: GB (occurrence: GB)
  Receive Date: 20171009
  Receipt Date: 20181204
  Transmission Date: 20190204
  Serious: Yes (Congenital Anomaly, Other)
  Sender: FDA-Public Use
  Company Number: GB-ABBVIE-17P-167-2123931-00

PATIENT
  Sex: Male

DRUGS (1)
  1. EPILIM [Suspect]
     Active Substance: VALPROATE SODIUM
     Indication: MATERNAL EXPOSURE TIMING UNSPECIFIED
     Route: 064

REACTIONS (4)
  - Dysmorphism [Unknown]
  - Autism spectrum disorder [Not Recovered/Not Resolved]
  - Foetal exposure during pregnancy [Unknown]
  - Impaired quality of life [Not Recovered/Not Resolved]
